FAERS Safety Report 21343516 (Version 1)
Quarter: 2022Q3

REPORT INFORMATION
  Report Type: Spontaneous
  Country: US (occurrence: US)
  Receive Date: 20220916
  Receipt Date: 20220916
  Transmission Date: 20221027
  Serious: Yes (Death)
  Sender: FDA-Public Use
  Company Number: US-LUNDBECK-DKLU3052506

PATIENT
  Age: 8 Year
  Sex: Female

DRUGS (3)
  1. SABRIL [Suspect]
     Active Substance: VIGABATRIN
     Indication: Pseudomonas infection
     Route: 048
     Dates: start: 202102
  2. SABRIL [Suspect]
     Active Substance: VIGABATRIN
     Indication: Infantile spasms
  3. SABRIL [Suspect]
     Active Substance: VIGABATRIN
     Indication: Dyspnoea

REACTIONS (1)
  - Death [Fatal]
